FAERS Safety Report 13510314 (Version 2)
Quarter: 2017Q2

REPORT INFORMATION
  Report Type: Report from Study
  Country: US (occurrence: US)
  Receive Date: 20170503
  Receipt Date: 20170504
  Transmission Date: 20170830
  Serious: No
  Sender: FDA-Public Use
  Company Number: PHEH2014US018511

PATIENT
  Age: 44 Year
  Sex: Female

DRUGS (1)
  1. GILENYA [Suspect]
     Active Substance: FINGOLIMOD HYDROCHLORIDE
     Indication: RELAPSING-REMITTING MULTIPLE SCLEROSIS
     Dosage: UNK
     Route: 065
     Dates: start: 20120201

REACTIONS (9)
  - Malaise [Unknown]
  - Hypoaesthesia [Unknown]
  - Accident [Recovered/Resolved]
  - Pyrexia [Unknown]
  - Multiple sclerosis relapse [Recovered/Resolved]
  - Memory impairment [Unknown]
  - Skin tightness [Unknown]
  - Pharyngitis streptococcal [Unknown]
  - Contusion [Recovered/Resolved]

NARRATIVE: CASE EVENT DATE: 20140404
